FAERS Safety Report 25728776 (Version 1)
Quarter: 2025Q3

REPORT INFORMATION
  Report Type: Spontaneous
  Country: US (occurrence: US)
  Receive Date: 20250826
  Receipt Date: 20250826
  Transmission Date: 20251020
  Serious: No
  Sender: ASCENDIS PHARMA
  Company Number: US-ASCENDIS PHARMA-2025US009898

PATIENT

DRUGS (8)
  1. YORVIPATH [Suspect]
     Active Substance: PALOPEGTERIPARATIDE
     Indication: Blood calcium abnormal
     Route: 065
     Dates: start: 20250311
  2. ABILIFY [Concomitant]
     Active Substance: ARIPIPRAZOLE
     Indication: Antipsychotic therapy
     Route: 065
  3. ATORVASTATIN [Concomitant]
     Active Substance: ATORVASTATIN
     Indication: Blood cholesterol abnormal
     Route: 065
  4. DICYCLOMINE [Concomitant]
     Active Substance: DICYCLOMINE HYDROCHLORIDE
     Indication: Diarrhoea
     Route: 065
  5. LEVOTHYROXINE [Concomitant]
     Active Substance: LEVOTHYROXINE
     Indication: Thyroid disorder
     Route: 065
  6. CALCIUM [Concomitant]
     Active Substance: CALCIUM
     Indication: Blood calcium abnormal
     Route: 065
  7. TOPIRAMATE [Concomitant]
     Active Substance: TOPIRAMATE
     Indication: Antipsychotic therapy
     Route: 065
  8. TRINTELLIX [Concomitant]
     Active Substance: VORTIOXETINE HYDROBROMIDE
     Indication: Antipsychotic therapy
     Route: 065

REACTIONS (2)
  - Haemoptysis [Not Recovered/Not Resolved]
  - Nasopharyngitis [Not Recovered/Not Resolved]

NARRATIVE: CASE EVENT DATE: 20250606
